FAERS Safety Report 16544538 (Version 1)
Quarter: 2019Q3

REPORT INFORMATION
  Report Type: Spontaneous
  Country: US (occurrence: US)
  Receive Date: 20190528
  Receipt Date: 20190528
  Transmission Date: 20191004
  Serious: Yes (Life-Threatening)
  Sender: FDA-Public Use
  Company Number: None

PATIENT
  Age: 77 Year
  Sex: Female
  Weight: 76.2 kg

DRUGS (8)
  1. OLMESARTAN [Concomitant]
     Active Substance: OLMESARTAN
  2. OCUVITE [Concomitant]
     Active Substance: VITAMINS
  3. LEVOTHYROXINE. [Concomitant]
     Active Substance: LEVOTHYROXINE
  4. D-3 CALCIFEROL [Concomitant]
  5. TYLENOL ARTHRITIS PAIN [Concomitant]
     Active Substance: ACETAMINOPHEN
  6. ONCOVITE [Concomitant]
  7. SENSIPAR [Suspect]
     Active Substance: CINACALCET HYDROCHLORIDE
     Indication: HYPERCALCAEMIA
     Dosage: ?          QUANTITY:30 MG MILLIGRAM(S);OTHER FREQUENCY:EVERY 2 DAYS;?
     Route: 048
     Dates: start: 20190111, end: 20190209
  8. CURCUMIN 95 [Concomitant]

REACTIONS (3)
  - Asthenia [None]
  - Drug intolerance [None]
  - Malaise [None]

NARRATIVE: CASE EVENT DATE: 20190111
